FAERS Safety Report 16800477 (Version 7)
Quarter: 2019Q4

REPORT INFORMATION
  Report Type: Report from Study
  Country: DE (occurrence: DE)
  Receive Date: 20190912
  Receipt Date: 20191205
  Transmission Date: 20200122
  Serious: Yes (Death, Life-Threatening, Hospitalization, Other)
  Sender: FDA-Public Use
  Company Number: DE-PFIZER INC-2019384249

PATIENT
  Sex: Female
  Weight: 68 kg

DRUGS (4)
  1. KISQALI [Suspect]
     Active Substance: RIBOCICLIB
     Indication: BREAST CANCER METASTATIC
     Dosage: 600 MG, 1X/DAY
     Route: 048
     Dates: start: 20190326, end: 20190621
  2. LETROZOLE. [Suspect]
     Active Substance: LETROZOLE
     Indication: BREAST CANCER METASTATIC
     Dosage: 2.5 MG, 1X/DAY
     Route: 048
     Dates: start: 20190326, end: 20190621
  3. PANTOPRAZOLE [Concomitant]
     Active Substance: PANTOPRAZOLE
     Dosage: UNK
     Route: 065
  4. EXEMESTANE. [Suspect]
     Active Substance: EXEMESTANE
     Indication: BREAST CANCER METASTATIC
     Dosage: 2.5 MG, 1X/DAY
     Route: 048
     Dates: start: 20190615

REACTIONS (18)
  - Cardiac disorder [Fatal]
  - C-reactive protein increased [Recovering/Resolving]
  - Photosensitivity reaction [Not Recovered/Not Resolved]
  - Decubitus ulcer [Not Recovered/Not Resolved]
  - Oedema peripheral [Recovered/Resolved]
  - Seizure [Recovered/Resolved]
  - Rash pruritic [Recovering/Resolving]
  - Fall [Recovered/Resolved]
  - Calcium deficiency [Recovered/Resolved]
  - Vitamin D deficiency [Not Recovered/Not Resolved]
  - Blister [Fatal]
  - Skin induration [Fatal]
  - Calcium deficiency [Not Recovered/Not Resolved]
  - Photosensitivity reaction [Fatal]
  - Pain [Recovered/Resolved]
  - General physical health deterioration [Unknown]
  - Hypokalaemia [Not Recovered/Not Resolved]
  - Diabetes mellitus [Recovered/Resolved]

NARRATIVE: CASE EVENT DATE: 20190408
